FAERS Safety Report 5923584-0 (Version None)
Quarter: 2008Q4

REPORT INFORMATION
  Report Type: 
  Country: None (occurrence: None)
  Receive Date: 20081020
  Receipt Date: 20081010
  Transmission Date: 20090506
  Serious: Yes (Hospitalization)
  Sender: FDA-Public Use
  Company Number: JP-ASTRAZENECA-2008SE04433

PATIENT
  Sex: Female
  Weight: 65 kg

DRUGS (4)
  1. BLOPRESS PLUS [Suspect]
     Indication: HYPERTENSION
     Dosage: CANDESARTAN CILEXETIL 16 MG/HYDROCHLOROTHIAZDE 12.5 MG
     Route: 048
  2. SIMVAHEXAL [Concomitant]
     Route: 048
  3. LAFAMME [Concomitant]
     Dosage: ESTRADIOLVALERAT 1 MG/DIENOGEST 2 MG
     Route: 048
  4. LEVOTHYROXINE SODIUM [Concomitant]
     Route: 048

REACTIONS (1)
  - CEREBRAL ISCHAEMIA [None]
